FAERS Safety Report 24902864 (Version 1)
Quarter: 2025Q1

REPORT INFORMATION
  Report Type: Report from Study
  Country: US (occurrence: US)
  Receive Date: 20250130
  Receipt Date: 20250130
  Transmission Date: 20250409
  Serious: Yes (Death, Other)
  Sender: ACADIA PHARMACEUTICALS
  Company Number: US-ACADIA PHARMACEUTICALS INC.-ACA-2025-PIM-000809

PATIENT
  Age: 79 Year
  Sex: Male

DRUGS (17)
  1. NUPLAZID [Suspect]
     Active Substance: PIMAVANSERIN TARTRATE
     Indication: Parkinson^s disease
     Dosage: 34 MILLIGRAM, QD
     Route: 048
     Dates: start: 20210313, end: 20250104
  2. ASPIRIN [Concomitant]
     Active Substance: ASPIRIN
  3. CARBIDOPA\LEVODOPA [Concomitant]
     Active Substance: CARBIDOPA\LEVODOPA
  4. DUTASTERIDE [Concomitant]
     Active Substance: DUTASTERIDE
  5. ENTACAPONE [Concomitant]
     Active Substance: ENTACAPONE
  6. JARDIANCE [Concomitant]
     Active Substance: EMPAGLIFLOZIN
  7. METFORMIN [Concomitant]
     Active Substance: METFORMIN HYDROCHLORIDE
  8. MYCOPHENOLIC ACID [Concomitant]
     Active Substance: MYCOPHENOLIC ACID
  9. ONGLYZA [Concomitant]
     Active Substance: SAXAGLIPTIN HYDROCHLORIDE
  10. PANTOPRAZOLE [Concomitant]
     Active Substance: PANTOPRAZOLE
  11. PREDNISONE [Concomitant]
     Active Substance: PREDNISONE
  12. PYRIDOSTIGMINE [Concomitant]
     Active Substance: PYRIDOSTIGMINE
  13. RASAGILINE [Concomitant]
     Active Substance: RASAGILINE
  14. ROPINIROLE [Concomitant]
     Active Substance: ROPINIROLE
  15. RYTARY [Concomitant]
     Active Substance: CARBIDOPA\LEVODOPA
  16. SELEGILINE [Concomitant]
     Active Substance: SELEGILINE
  17. SINEMET [Concomitant]
     Active Substance: CARBIDOPA\LEVODOPA

REACTIONS (1)
  - Death [Fatal]

NARRATIVE: CASE EVENT DATE: 20250104
